FAERS Safety Report 8338555-7 (Version None)
Quarter: 2012Q2

REPORT INFORMATION
  Report Type: 
  Country: None (occurrence: None)
  Receive Date: 20120504
  Receipt Date: 20120423
  Transmission Date: 20120825
  Serious: Yes (Hospitalization, Other)
  Sender: FDA-Public Use
  Company Number: BE-MEDIMMUNE-MEDI-0015542

PATIENT
  Sex: Male
  Weight: 5.2 kg

DRUGS (2)
  1. SYNAGIS [Suspect]
     Indication: PREMATURE BABY
     Dates: start: 20111002, end: 20111201
  2. SYNAGIS [Suspect]
     Dates: start: 20120105, end: 20120203

REACTIONS (3)
  - ABDOMINAL ADHESIONS [None]
  - RESPIRATORY SYNCYTIAL VIRUS INFECTION [None]
  - SMALL INTESTINAL STENOSIS [None]
